FAERS Safety Report 11349469 (Version 1)
Quarter: 2015Q3

REPORT INFORMATION
  Report Type: Spontaneous
  Country: IT (occurrence: IT)
  Receive Date: 20150807
  Receipt Date: 20150807
  Transmission Date: 20151125
  Serious: Yes (Hospitalization)
  Sender: FDA-Public Use
  Company Number: IT-SUN PHARMACEUTICAL INDUSTRIES LTD-2015RR-101262

PATIENT

DRUGS (1)
  1. PARACETAMOL [Suspect]
     Active Substance: ACETAMINOPHEN
     Indication: HYPERPYREXIA
     Dosage: 500 MG, TOTAL
     Route: 048
     Dates: start: 20141208, end: 20141208

REACTIONS (1)
  - Rash [Unknown]

NARRATIVE: CASE EVENT DATE: 20141208
